FAERS Safety Report 6334921-X (Version None)
Quarter: 2009Q3

REPORT INFORMATION
  Report Type: 
  Country: None (occurrence: None)
  Receive Date: 20090831
  Receipt Date: 20090824
  Transmission Date: 20100115
  Serious: Yes (Other)
  Sender: FDA-Public Use
  Company Number: HU-AVENTIS-200919454GDDC

PATIENT
  Sex: Male

DRUGS (2)
  1. LANTUS [Suspect]
     Indication: DIABETES MELLITUS
     Route: 058
     Dates: start: 20080501
  2. ORAL ANTIDIABETICS [Concomitant]

REACTIONS (1)
  - BLADDER NEOPLASM [None]
